FAERS Safety Report 11450909 (Version 1)
Quarter: 2015Q3

REPORT INFORMATION
  Report Type: Spontaneous
  Country: US (occurrence: US)
  Receive Date: 20150903
  Receipt Date: 20150903
  Transmission Date: 20151125
  Serious: No
  Sender: FDA-Public Use
  Company Number: US-ROCHE-1024446

PATIENT
  Age: 60 Year
  Sex: Male
  Weight: 54.03 kg

DRUGS (4)
  1. TELAPREVIR [Suspect]
     Active Substance: TELAPREVIR
     Indication: HEPATITIS
     Route: 048
     Dates: start: 20110902, end: 20111007
  2. PEGASYS [Suspect]
     Active Substance: PEGINTERFERON ALFA-2A
     Indication: HEPATITIS C
     Route: 058
     Dates: start: 20110902, end: 20120418
  3. RIBASPHERE [Suspect]
     Active Substance: RIBAVIRIN
     Indication: HEPATITIS
     Dosage: DIVIDED DOSAGE
     Route: 065
     Dates: start: 20110902
  4. PROCRIT [Concomitant]
     Active Substance: ERYTHROPOIETIN
     Route: 042

REACTIONS (10)
  - Depression [Unknown]
  - Alopecia [Unknown]
  - Chest pain [Unknown]
  - Insomnia [Unknown]
  - Nausea [Recovered/Resolved]
  - Anxiety [Unknown]
  - Weight decreased [Unknown]
  - Abdominal pain [Recovered/Resolved]
  - Red blood cell count decreased [Unknown]
  - Rash [Unknown]

NARRATIVE: CASE EVENT DATE: 20120410
